FAERS Safety Report 14255646 (Version 1)
Quarter: 2017Q4

REPORT INFORMATION
  Report Type: Spontaneous
  Country: US (occurrence: US)
  Receive Date: 20171206
  Receipt Date: 20171206
  Transmission Date: 20180321
  Serious: No
  Sender: FDA-Public Use
  Company Number: US-TARO-2017TAR00950

PATIENT
  Sex: Male

DRUGS (1)
  1. BETAMETHASONE VALERATE FOAM 0.12% [Suspect]
     Active Substance: BETAMETHASONE VALERATE
     Indication: SKIN DISORDER
     Dosage: UNK
     Dates: end: 201710

REACTIONS (3)
  - Condition aggravated [Not Recovered/Not Resolved]
  - Drug dose omission [Not Recovered/Not Resolved]
  - Product quality issue [Recovered/Resolved]

NARRATIVE: CASE EVENT DATE: 201710
